FAERS Safety Report 16644236 (Version 1)
Quarter: 2019Q3

REPORT INFORMATION
  Report Type: Report from Study
  Country: US (occurrence: US)
  Receive Date: 20190729
  Receipt Date: 20190729
  Transmission Date: 20191004
  Serious: Yes (Other)
  Sender: FDA-Public Use
  Company Number: US-JNJFOC-20190311744

PATIENT

DRUGS (2)
  1. IBRUTINIB [Suspect]
     Active Substance: IBRUTINIB
     Indication: CHRONIC LYMPHOCYTIC LEUKAEMIA
     Route: 048
     Dates: start: 201401
  2. IBRUTINIB [Suspect]
     Active Substance: IBRUTINIB
     Route: 048
     Dates: end: 201706

REACTIONS (13)
  - Mucosal inflammation [Unknown]
  - Disease progression [Unknown]
  - Transaminases increased [Unknown]
  - Cytopenia [Recovering/Resolving]
  - Cardiac failure congestive [Unknown]
  - Headache [Unknown]
  - Diarrhoea [Unknown]
  - Haemorrhage [Unknown]
  - Arthralgia [Unknown]
  - Hypoglycaemia [Unknown]
  - Atrial fibrillation [Unknown]
  - Infection [Unknown]
  - Fatigue [Unknown]
